FAERS Safety Report 11459382 (Version 1)
Quarter: 2015Q3

REPORT INFORMATION
  Report Type: Spontaneous
  Country: US (occurrence: US)
  Receive Date: 20150904
  Receipt Date: 20150904
  Transmission Date: 20151125
  Serious: No
  Sender: FDA-Public Use
  Company Number: US-JNJFOC-20150804839

PATIENT
  Age: 11 Year
  Sex: Female
  Weight: 25.9 kg

DRUGS (2)
  1. TOPAMAX [Suspect]
     Active Substance: TOPIRAMATE
     Indication: HEADACHE
     Route: 048
  2. TOPAMAX [Suspect]
     Active Substance: TOPIRAMATE
     Indication: HEADACHE
     Route: 048

REACTIONS (8)
  - Musculoskeletal pain [Unknown]
  - Dizziness [Unknown]
  - Pain in extremity [Unknown]
  - Pain in jaw [Unknown]
  - Back pain [Unknown]
  - Neck pain [Unknown]
  - Tinnitus [Unknown]
  - Headache [Unknown]
